FAERS Safety Report 9345885 (Version 2)
Quarter: 2013Q2

REPORT INFORMATION
  Report Type: Spontaneous
  Country: US (occurrence: US)
  Receive Date: 20130613
  Receipt Date: 20130626
  Transmission Date: 20140414
  Serious: Yes (Other)
  Sender: FDA-Public Use
  Company Number: US-AMGEN-USASP2013041401

PATIENT
  Age: 80 Year
  Sex: Female
  Weight: 60.54 kg

DRUGS (1)
  1. PROLIA [Suspect]
     Indication: OSTEOPOROSIS POSTMENOPAUSAL
     Dosage: UNK
     Dates: start: 20130521

REACTIONS (6)
  - Oral candidiasis [Not Recovered/Not Resolved]
  - Tongue discolouration [Unknown]
  - Gingival discolouration [Unknown]
  - Cheilitis [Unknown]
  - Lip swelling [Unknown]
  - Burning sensation [Unknown]
